FAERS Safety Report 9513870 (Version 1)
Quarter: 2013Q1

REPORT INFORMATION
  Report Type: Spontaneous
  Country: US (occurrence: None)
  Receive Date: 20130305
  Receipt Date: 20130305
  Transmission Date: 20140127
  Serious: Yes (Life-Threatening, Hospitalization)
  Sender: FDA-Public Use
  Company Number: 163-21880-12043015

PATIENT
  Age: 60 Year
  Sex: Female

DRUGS (5)
  1. REVLIMID (LENALIDOMIDE) (CAPSULES) [Suspect]
     Indication: PLASMA CELL MYELOMA
     Route: 048
     Dates: start: 201203, end: 201204
  2. THALIDOMIDE (THALIDOMIDE) (CAPSULES) [Suspect]
     Route: 048
     Dates: start: 20120511
  3. CYTOXAN (CYCLOPHOSPHAMIDE) [Suspect]
     Dates: start: 20120511
  4. VELCADE [Suspect]
     Indication: PRODUCT USED FOR UNKNOWN INDICATION
     Dates: start: 201203, end: 201204
  5. STEROIDS (CORTICOSTEROIDS) [Concomitant]

REACTIONS (5)
  - Interstitial lung disease [None]
  - Condition aggravated [None]
  - Pyrexia [None]
  - Abdominal pain [None]
  - Respiratory syncytial virus infection [None]
